FAERS Safety Report 13706968 (Version 6)
Quarter: 2019Q1

REPORT INFORMATION
  Report Type: Spontaneous
  Country: US (occurrence: US)
  Receive Date: 20170630
  Receipt Date: 20190111
  Transmission Date: 20190417
  Serious: No
  Sender: FDA-Public Use
  Company Number: US-PFIZER INC-2016389019

PATIENT
  Age: 54 Year
  Sex: Female
  Weight: 77.11 kg

DRUGS (24)
  1. LYRICA [Suspect]
     Active Substance: PREGABALIN
     Dosage: 50 MG, TWICE DAILY
     Route: 048
  2. FIORICET [Concomitant]
     Active Substance: ACETAMINOPHEN\BUTALBITAL\CAFFEINE
     Indication: HEADACHE
     Dosage: 1 DF, AS NEEDED (EVERY SIX HOURS)
     Route: 048
  3. LYRICA [Suspect]
     Active Substance: PREGABALIN
     Dosage: 75 MG, TWICE DAILY (EVERY 12 HOURS)
     Route: 048
     Dates: end: 2018
  4. CLOTRIMAZOLE AND BETAMETHASONE [Concomitant]
     Active Substance: BETAMETHASONE\CLOTRIMAZOLE
     Dosage: UNK, TWICE DAILY
     Route: 061
     Dates: start: 20150223
  5. VITAMIN D3 [Concomitant]
     Active Substance: CHOLECALCIFEROL
     Dosage: 5000 IU, ONCE DAILY
     Route: 048
  6. NAPROSYN [Concomitant]
     Active Substance: NAPROXEN
     Dosage: 500 MG, AS NEEDED (2 TIMES DAILY)
     Route: 048
  7. SENOKOT-S [Concomitant]
     Active Substance: DOCUSATE SODIUM\SENNOSIDES
     Indication: CONSTIPATION
     Dosage: 2 DF, AS NEEDED (NIGHTLY)
     Route: 048
  8. BIOTIN [Concomitant]
     Active Substance: BIOTIN
     Dosage: 1 MG, ONCE DAILY
     Route: 048
  9. FLUTICASONE PROPIONATE. [Concomitant]
     Active Substance: FLUTICASONE PROPIONATE
     Indication: HYPERSENSITIVITY
     Dosage: 2 SPRAYS IN EACH NOSTRIL, AS NEEDED (ONCE DAILY)
     Route: 045
     Dates: start: 20110907
  10. TURMERIC [Concomitant]
     Active Substance: HERBALS\TURMERIC
     Dosage: UNK
  11. FLONASE [Concomitant]
     Active Substance: FLUTICASONE PROPIONATE
     Dosage: 2 SPRAYS INTO BOTH NOSTRIL, ONCE DAILY
     Route: 045
  12. ZOFRAN [Concomitant]
     Active Substance: ONDANSETRON HYDROCHLORIDE
     Indication: NAUSEA
     Dosage: 4 MG, AS NEEDED (EVERY 8 HOURS UP TO 7 DAYS)
     Route: 048
  13. LYRICA [Suspect]
     Active Substance: PREGABALIN
     Dosage: 60 MG, TWICE DAILY
     Route: 048
     Dates: start: 2017
  14. CYMBALTA [Concomitant]
     Active Substance: DULOXETINE HYDROCHLORIDE
     Dosage: 60 MG, ONCE DAILY (BEDTIME)
     Route: 048
     Dates: start: 20140715
  15. VITAMIN D3 [Concomitant]
     Active Substance: CHOLECALCIFEROL
     Dosage: 2000 IU, DAILY
     Route: 048
  16. DEPAKOTE [Concomitant]
     Active Substance: DIVALPROEX SODIUM
     Dosage: 500 MG, ONCE DAILY (NIGHTLY)
     Route: 048
  17. HYDROCORTISONE. [Concomitant]
     Active Substance: HYDROCORTISONE
     Dosage: UNK, TWICE DAILY
     Route: 061
  18. ZANTAC [Concomitant]
     Active Substance: RANITIDINE HYDROCHLORIDE
     Dosage: 150 MG, TWICE DAILY
     Route: 048
  19. ZANAFLEX [Concomitant]
     Active Substance: TIZANIDINE HYDROCHLORIDE
     Indication: MUSCLE SPASMS
     Dosage: 2 MG, AS NEEDED (3 TIMES DAILY)
     Route: 048
  20. BIOTIN [Concomitant]
     Active Substance: BIOTIN
     Dosage: 5 MG, DAILY
     Route: 048
     Dates: start: 20140715
  21. SYSTANE NIGHTTIME [Concomitant]
     Active Substance: MINERAL OIL\PETROLATUM
     Dosage: 1/2 INCH RIBBON INTO AFFECTED EYE(S), ONCE DAILY (AT BEDTIME)
     Route: 047
     Dates: start: 20120515
  22. LYRICA [Suspect]
     Active Substance: PREGABALIN
     Indication: FIBROMYALGIA
     Dosage: 50 MG, ONCE DAILY (BEDTIME)
     Route: 048
  23. ANTIVERT [Concomitant]
     Active Substance: MECLIZINE HYDROCHLORIDE
     Dosage: 25 MG, THRICE DAILY (FOR 14 DAYS)
     Route: 048
  24. CHOLECALCIFEROL [Concomitant]
     Active Substance: CHOLECALCIFEROL
     Dosage: 5000 IU, ONCE DAILY
     Route: 048

REACTIONS (11)
  - Back pain [Unknown]
  - Migraine [Not Recovered/Not Resolved]
  - Nausea [Recovering/Resolving]
  - Malaise [Not Recovered/Not Resolved]
  - Headache [Unknown]
  - Product dose omission [Unknown]
  - Arthralgia [Unknown]
  - Withdrawal syndrome [Unknown]
  - Intentional product use issue [Unknown]
  - Asthenia [Not Recovered/Not Resolved]
  - Blood pressure increased [Recovered/Resolved]

NARRATIVE: CASE EVENT DATE: 20170617
